FAERS Safety Report 23390516 (Version 1)
Quarter: 2024Q1

REPORT INFORMATION
  Report Type: Spontaneous
  Country: US (occurrence: None)
  Receive Date: 20240111
  Receipt Date: 20240111
  Transmission Date: 20240410
  Serious: Yes (Hospitalization, Other)
  Sender: FDA-Public Use
  Company Number: US-Emmaus Medical, Inc.-EMM202401-000010

PATIENT
  Age: 10 Year
  Sex: Female

DRUGS (1)
  1. ENDARI [Suspect]
     Active Substance: GLUTAMINE
     Indication: Sickle cell disease
     Dosage: 5 G
     Route: 048

REACTIONS (3)
  - Pneumonia [Unknown]
  - Sickle cell anaemia with crisis [Unknown]
  - Emergency care [Unknown]

NARRATIVE: CASE EVENT DATE: 20230101
